FAERS Safety Report 8807228 (Version 4)
Quarter: 2012Q4

REPORT INFORMATION
  Report Type: 
  Country: US (occurrence: US)
  Receive Date: 20120925
  Receipt Date: 20121106
  Transmission Date: 20130627
  Serious: No
  Sender: FDA-Public Use
  Company Number: US-ASTRAZENECA-2012SE73053

PATIENT
  Age: 25 Year
  Sex: Female

DRUGS (6)
  1. SYMBICORT PMDI [Suspect]
     Indication: ASTHMA
     Dosage: 160-4.5 MCGS TWO TIMES A DAY
     Route: 055
  2. SYMBICORT PMDI [Suspect]
     Indication: ASTHMA
     Dosage: 160-4.5 MCGS TWO TIMES A DAY 4 PUFFS
     Route: 055
  3. SYMBICORT PMDI [Suspect]
     Indication: ASTHMA
     Dosage: 160-4.5 MCGS THREE TIMES A DAY 6 PUFFS
     Route: 055
  4. SYMBICORT PMDI [Suspect]
     Indication: ASTHMA
     Dosage: 160-4.5 MCGS FOUR TIMES A DAY 10 PUFFS
     Route: 055
  5. SINGULAIR [Concomitant]
     Indication: ASTHMA
  6. METHOPREDNISONE [Concomitant]

REACTIONS (5)
  - Asthma [Recovered/Resolved]
  - Performance status decreased [Unknown]
  - Exercise tolerance decreased [Unknown]
  - Sleep disorder due to general medical condition, insomnia type [Unknown]
  - Activities of daily living impaired [Unknown]
